FAERS Safety Report 24754420 (Version 1)
Quarter: 2024Q4

REPORT INFORMATION
  Report Type: Spontaneous
  Country: US (occurrence: None)
  Receive Date: 20241218
  Receipt Date: 20241218
  Transmission Date: 20250114
  Serious: Yes (Hospitalization)
  Sender: Public
  Company Number: None

PATIENT
  Age: 10 Year
  Sex: Male
  Weight: 34.2 kg

DRUGS (10)
  1. ELEVIDYS [Suspect]
     Active Substance: DELANDISTROGENE MOXEPARVOVEC-ROKL
     Indication: Duchenne muscular dystrophy
     Dosage: OTHER FREQUENCY : ONCE;?
     Route: 040
     Dates: start: 20240926, end: 20240926
  2. Albuterol inhaler 90 mcg as needed [Concomitant]
  3. Budesonide-formoterol 80 mcg-4.5 mcg 2 puffs BID [Concomitant]
  4. deflazacort 22.75 mg/mL  1.3 mL daily [Concomitant]
  5. famotidine 40 mg/5 mL 5 mLBID [Concomitant]
  6. diphenhydramine 12.5 mg TID before infusion [Concomitant]
  7. acetaminophen prior to infusion [Concomitant]
  8. multivitamin with minerals daily [Concomitant]
  9. ondansetron 4 mg TID [Concomitant]
  10. polyethylene glycol 3350 17 g daily [Concomitant]

REACTIONS (2)
  - Aspartate aminotransferase increased [None]
  - Alanine aminotransferase increased [None]

NARRATIVE: CASE EVENT DATE: 20241116
